FAERS Safety Report 14301726 (Version 1)
Quarter: 2017Q4

REPORT INFORMATION
  Report Type: Spontaneous
  Country: US (occurrence: US)
  Receive Date: 20171218
  Receipt Date: 20171218
  Transmission Date: 20180321
  Serious: Yes (Life-Threatening, Hospitalization, Other)
  Sender: FDA-Public Use
  Company Number: None

PATIENT
  Sex: Female
  Weight: 13.5 kg

DRUGS (3)
  1. CYPROHEPTADINE. [Suspect]
     Active Substance: CYPROHEPTADINE
     Indication: UNDERWEIGHT
     Dates: start: 20150401, end: 20160923
  2. CYPROHEPTADINE. [Suspect]
     Active Substance: CYPROHEPTADINE
     Indication: VOMITING
     Dates: start: 20150401, end: 20160923
  3. CYPROHEPTADINE. [Suspect]
     Active Substance: CYPROHEPTADINE
     Indication: CYCLIC VOMITING SYNDROME
     Dates: start: 20150401, end: 20160923

REACTIONS (1)
  - Volvulus [None]

NARRATIVE: CASE EVENT DATE: 20160923
